FAERS Safety Report 5675331-8 (Version None)
Quarter: 2008Q1

REPORT INFORMATION
  Report Type: 
  Country: None (occurrence: None)
  Receive Date: 20080320
  Receipt Date: 20080318
  Transmission Date: 20080703
  Serious: Yes (Other)
  Sender: FDA-Public Use
  Company Number: US-BOEHRINGER INGELHEIM GMBH, GERMANY-2008-BP-04065RO

PATIENT
  Age: 5 Year
  Sex: Male
  Weight: 14 kg

DRUGS (3)
  1. MIDAZOLAM HCL [Suspect]
     Indication: PREMEDICATION
     Route: 048
  2. CLONIDINE [Concomitant]
     Indication: SEDATION
     Route: 045
  3. FENTANYL [Concomitant]
     Indication: AGITATION
     Route: 042

REACTIONS (3)
  - ACUTE PSYCHOSIS [None]
  - AGITATION [None]
  - HALLUCINATION [None]
